FAERS Safety Report 24187199 (Version 3)
Quarter: 2025Q2

REPORT INFORMATION
  Report Type: Spontaneous
  Country: PL (occurrence: PL)
  Receive Date: 20240808
  Receipt Date: 20250408
  Transmission Date: 20250716
  Serious: Yes (Hospitalization, Other)
  Sender: SANOFI AVENTIS
  Company Number: PL-EMA-DD-20240730-7482709-071317

PATIENT
  Age: 58 Year
  Sex: Male

DRUGS (5)
  1. BCG LIVE [Suspect]
     Active Substance: BCG LIVE
     Indication: Bladder transitional cell carcinoma
     Route: 043
  2. BCG LIVE [Suspect]
     Active Substance: BCG LIVE
     Indication: Intravesical immunotherapy
  3. ETHAMBUTOL [Suspect]
     Active Substance: ETHAMBUTOL HYDROCHLORIDE
     Indication: Tuberculosis
  4. RIFAMPIN [Suspect]
     Active Substance: RIFAMPIN
     Indication: Tuberculosis
  5. STREPTOMYCIN [Suspect]
     Active Substance: STREPTOMYCIN SULFATE
     Indication: Tuberculosis

REACTIONS (7)
  - Disseminated Bacillus Calmette-Guerin infection [Recovered/Resolved]
  - Pulmonary mass [Recovered/Resolved]
  - Pyrexia [Recovered/Resolved]
  - Decreased appetite [Unknown]
  - Drug intolerance [Unknown]
  - Myalgia [Recovered/Resolved]
  - Hepatic enzyme increased [Recovered/Resolved]
